FAERS Safety Report 10193467 (Version 1)
Quarter: 2014Q2

REPORT INFORMATION
  Report Type: Spontaneous
  Country: US (occurrence: US)
  Receive Date: 20140524
  Receipt Date: 20140524
  Transmission Date: 20141212
  Serious: No
  Sender: FDA-Public Use
  Company Number: US-SA-2013SA128780

PATIENT
  Age: 61 Year
  Sex: Female
  Weight: 64 kg

DRUGS (1)
  1. LANTUS [Suspect]
     Indication: HYPERGLYCAEMIA
     Dosage: DOSE:10 UNIT(S)
     Route: 051
     Dates: start: 20130712, end: 20130812

REACTIONS (1)
  - Urticaria [Recovered/Resolved]
